FAERS Safety Report 9118440 (Version 1)
Quarter: 2013Q1

REPORT INFORMATION
  Report Type: Spontaneous
  Country: US (occurrence: None)
  Receive Date: 20130221
  Receipt Date: 20130221
  Transmission Date: 20140127
  Serious: No
  Sender: FDA-Public Use
  Company Number: None

PATIENT
  Age: 73 Year
  Sex: Female
  Weight: 79 kg

DRUGS (1)
  1. ZITHROMAX [Suspect]
     Route: 042
     Dates: start: 20130213, end: 20130213

REACTIONS (3)
  - Pruritus [None]
  - Nausea [None]
  - Vomiting [None]
